FAERS Safety Report 9026653 (Version 1)
Quarter: 2013Q1

REPORT INFORMATION
  Report Type: Spontaneous
  Country: GB (occurrence: None)
  Receive Date: 20130108
  Receipt Date: 20130108
  Transmission Date: 20140127
  Serious: Yes (Hospitalization)
  Sender: FDA-Public Use
  Company Number: AEGBR201200562

PATIENT
  Age: 6 Year
  Sex: Female

DRUGS (1)
  1. IMMUNE GLOBULIN HUMAN [Suspect]
     Indication: PRODUCT USED FOR UNKNOWN INDICATION
     Dosage: 2000 MG/KG; QD; IV
     Route: 042
     Dates: start: 20121210, end: 20121211

REACTIONS (2)
  - Meningitis aseptic [None]
  - Malaise [None]
